FAERS Safety Report 13330292 (Version 1)
Quarter: 2017Q1

REPORT INFORMATION
  Report Type: Spontaneous
  Country: US (occurrence: US)
  Receive Date: 20170314
  Receipt Date: 20170314
  Transmission Date: 20170428
  Serious: No
  Sender: FDA-Public Use
  Company Number: US-GLENMARK PHARMACEUTICALS-2016GMK023021

PATIENT

DRUGS (3)
  1. FLUCONAZOLE. [Suspect]
     Active Substance: FLUCONAZOLE
     Indication: ONYCHOMYCOSIS
     Dosage: 150 MG, ONCE A WEEK
     Route: 048
     Dates: start: 201508, end: 201509
  2. IBUPROFEN. [Concomitant]
     Active Substance: IBUPROFEN
     Indication: ANTIINFLAMMATORY THERAPY
     Dosage: UNK UNK, PRN
     Route: 048
  3. TERCONAZOLE. [Concomitant]
     Active Substance: TERCONAZOLE
     Indication: ONYCHOMYCOSIS
     Dosage: UNK
     Route: 061

REACTIONS (5)
  - Treatment noncompliance [Unknown]
  - Dysgeusia [Not Recovered/Not Resolved]
  - Product use issue [Unknown]
  - Product taste abnormal [Not Recovered/Not Resolved]
  - Disease recurrence [Unknown]

NARRATIVE: CASE EVENT DATE: 201509
